FAERS Safety Report 6271154-X (Version None)
Quarter: 2009Q3

REPORT INFORMATION
  Report Type: 
  Country: None (occurrence: None)
  Receive Date: 20090717
  Receipt Date: 20090706
  Transmission Date: 20100115
  Serious: Yes (Other)
  Sender: FDA-Public Use
  Company Number: US-RB-017103-09

PATIENT
  Age: 52 Year
  Sex: Female

DRUGS (4)
  1. SUBOXONE [Suspect]
     Dosage: DOSE UNKNOWN.
     Route: 060
     Dates: start: 20070501
  2. LEXAPRO [Concomitant]
     Indication: DEPRESSION
     Route: 065
     Dates: end: 20090501
  3. LEXAPRO [Concomitant]
     Indication: ANXIETY
     Route: 065
     Dates: end: 20090501
  4. LEXAPRO [Concomitant]
     Indication: PANIC DISORDER
     Route: 065
     Dates: end: 20090501

REACTIONS (6)
  - ASTHENIA [None]
  - FATIGUE [None]
  - MANIA [None]
  - PAIN [None]
  - SUICIDAL IDEATION [None]
  - VIRAL LOAD INCREASED [None]
